FAERS Safety Report 7888800-7 (Version None)
Quarter: 2011Q4

REPORT INFORMATION
  Report Type: 
  Country: None (occurrence: None)
  Receive Date: 20111102
  Receipt Date: 20111102
  Transmission Date: 20120403
  Serious: No
  Sender: FDA-Public Use
  Company Number: None

PATIENT
  Sex: Female

DRUGS (1)
  1. MAKENA [Suspect]
     Indication: PREMATURE LABOUR
     Dosage: 250MG/ML WEEKLY I.M.
     Route: 030
     Dates: start: 20110728, end: 20110920

REACTIONS (2)
  - PRURITUS [None]
  - FLUID RETENTION [None]
